FAERS Safety Report 18898974 (Version 1)
Quarter: 2021Q1

REPORT INFORMATION
  Report Type: Spontaneous
  Country: US (occurrence: US)
  Receive Date: 20210216
  Receipt Date: 20210216
  Transmission Date: 20210420
  Serious: Yes (Death, Life-Threatening, Hospitalization)
  Sender: FDA-Public Use
  Company Number: None

PATIENT
  Age: 59 Year
  Sex: Male
  Weight: 106 kg

DRUGS (22)
  1. MEROPENEM 500MG IV Q12H TO DAILY [Concomitant]
     Dates: start: 20201225, end: 20201231
  2. CEFTRIAXONE 1G IV Q24H [Concomitant]
     Dates: start: 20201211, end: 20201218
  3. FENTANYL INFUSION [Concomitant]
     Active Substance: FENTANYL
     Dates: start: 20201222, end: 20210108
  4. LANTUS QHS [Concomitant]
     Dates: start: 20201212, end: 20210108
  5. AZITHROMYCIN 500MG IV DAILY [Concomitant]
     Dates: start: 20201211, end: 20201216
  6. CEFEPIME 1G IV Q12H [Concomitant]
     Dates: start: 20201223, end: 20201225
  7. DEXAMETHASONE 6MG IV DAILY [Concomitant]
     Dates: start: 20201211, end: 20210101
  8. ENOXAPARIN 100MG SUBQ Q12H THEN 90MG Q12H [Concomitant]
     Dates: start: 20201214, end: 20201227
  9. LISINOPRIL 20MG DAILY [Concomitant]
     Dates: start: 20201212, end: 20201225
  10. ALBUTEROL HFA 2 PUFFS INH Q4H PRN WHEEZING [Concomitant]
     Dates: start: 20201212, end: 20201226
  11. FLONASE 50MCG 1 SPRAY/NOSTRIL DAILY [Concomitant]
     Dates: start: 20201212, end: 20201226
  12. FLOVENT HFA 2 PUFFS INH BID [Concomitant]
     Dates: start: 20201212, end: 20201226
  13. APIXABAN 5MG BID [Concomitant]
     Dates: start: 20201221, end: 20201223
  14. DILTIAZEM INFUSION [Concomitant]
     Dates: start: 20201213, end: 20201215
  15. FAMOTIDINE 20MG IV Q12H [Concomitant]
     Dates: start: 20201222, end: 20201229
  16. REMDESIVIR. [Suspect]
     Active Substance: REMDESIVIR
     Indication: COVID-19 PNEUMONIA
     Dosage: ?          OTHER FREQUENCY:200MG X1, 100MG/D;?
     Route: 042
     Dates: start: 20201212, end: 20201216
  17. AMIODARONE IV THEN 200MG PO BID [Concomitant]
     Dates: start: 20201214, end: 20201227
  18. AMLODIPINE 5MG DAILY THEN 2.5MG DAILY [Concomitant]
     Dates: start: 20201212, end: 20201227
  19. ATRACURIUM INFUSION [Concomitant]
     Dates: start: 20201226, end: 20210108
  20. ACETAMINOPHEN 650MG PO Q4H PRN FEVER/PAIN 1?3 [Concomitant]
     Dates: start: 20201212, end: 20210108
  21. EPOPROSTENOL CONTINUOUS NEB [Concomitant]
     Dates: start: 20201222, end: 20210108
  22. INSULIN LISPRO SSI 4/XD [Concomitant]
     Dates: start: 20201212, end: 20210108

REACTIONS (4)
  - Acute kidney injury [None]
  - Acidosis [None]
  - Procedural hypertension [None]
  - Hypotension [None]

NARRATIVE: CASE EVENT DATE: 20201223
